FAERS Safety Report 18796224 (Version 1)
Quarter: 2021Q1

REPORT INFORMATION
  Report Type: Spontaneous
  Country: CA (occurrence: CA)
  Receive Date: 20210127
  Receipt Date: 20210127
  Transmission Date: 20210419
  Serious: Yes (Hospitalization)
  Sender: FDA-Public Use
  Company Number: CA-FRESENIUS KABI-FK202100939

PATIENT
  Sex: Female

DRUGS (1)
  1. MAGNESIUM SULFATE (MANUFACTURER UNKNOWN) [Suspect]
     Active Substance: MAGNESIUM SULFATE
     Indication: PRODUCT USED FOR UNKNOWN INDICATION
     Route: 042

REACTIONS (7)
  - Fatigue [Unknown]
  - Hypoaesthesia oral [Unknown]
  - Muscle rigidity [Unknown]
  - Tremor [Unknown]
  - Somnolence [Unknown]
  - Depressed level of consciousness [Unknown]
  - Feeling hot [Unknown]
